FAERS Safety Report 16086439 (Version 2)
Quarter: 2019Q2

REPORT INFORMATION
  Report Type: Spontaneous
  Country: US (occurrence: US)
  Receive Date: 20190318
  Receipt Date: 20190410
  Transmission Date: 20190711
  Serious: Yes (Hospitalization)
  Sender: FDA-Public Use
  Company Number: US-PROCTER_AND_GAMBLE-GS19025420

PATIENT
  Age: 53 Year
  Sex: Female
  Weight: 72.56 kg

DRUGS (5)
  1. CREST PRO-HEALTH ADVANCED EXTRA WHITENING POWER PLUS FRESHNESS [Suspect]
     Active Substance: STANNOUS FLUORIDE
     Indication: DENTAL DISORDER PROPHYLAXIS
     Dosage: ABOUT HALF AN INCH, 1 ONLY
     Route: 002
     Dates: start: 20180611, end: 20180611
  2. CREST PRO-HEALTH ADVANCED EXTRA WHITENING POWER PLUS FRESHNESS [Suspect]
     Active Substance: STANNOUS FLUORIDE
     Dosage: ABOUT HALF AN INCH, 1 ONLY
     Route: 002
     Dates: start: 20190303, end: 20190303
  3. LISINOPRIL. [Concomitant]
     Active Substance: LISINOPRIL
     Indication: HYPERTENSION
     Dosage: DAILY 1X
  4. SEROQUEL [Concomitant]
     Active Substance: QUETIAPINE FUMARATE
     Indication: INSOMNIA
     Dosage: 50 MG TAB QHS AS NEEDED FOR SLEEP
  5. CYMBALTA [Concomitant]
     Active Substance: DULOXETINE HYDROCHLORIDE
     Indication: ANXIETY
     Dosage: DAILY 1X

REACTIONS (9)
  - Angioedema [Recovered/Resolved]
  - Lip swelling [Recovered/Resolved]
  - Swelling face [Recovered/Resolved]
  - Pyrexia [Recovered/Resolved]
  - Dyspnoea [Recovered/Resolved]
  - Pharyngeal swelling [Recovered/Resolved]
  - Pruritus [Recovered/Resolved]
  - Reaction to excipient [Recovered/Resolved]
  - Hypersensitivity [Recovered/Resolved]

NARRATIVE: CASE EVENT DATE: 20180611
